FAERS Safety Report 20102782 (Version 1)
Quarter: 2021Q4

REPORT INFORMATION
  Report Type: Spontaneous
  Country: CN (occurrence: CN)
  Receive Date: 20211123
  Receipt Date: 20211123
  Transmission Date: 20220303
  Serious: Yes (Hospitalization)
  Sender: FDA-Public Use
  Company Number: CN-NOVARTISPH-NVSC2021CN265653

PATIENT
  Age: 74 Year
  Sex: Female

DRUGS (1)
  1. DEXAMETHASONE\TOBRAMYCIN [Suspect]
     Active Substance: DEXAMETHASONE\TOBRAMYCIN
     Indication: Conjunctivitis
     Dosage: 2.000 UNK, QD
     Route: 047
     Dates: start: 20211108, end: 20211110

REACTIONS (3)
  - Herpes virus infection [Recovered/Resolved]
  - Erythema [Recovered/Resolved]
  - Periorbital swelling [Recovered/Resolved]

NARRATIVE: CASE EVENT DATE: 20211109
